FAERS Safety Report 24722823 (Version 1)
Quarter: 2024Q4

REPORT INFORMATION
  Report Type: Spontaneous
  Country: US (occurrence: US)
  Receive Date: 20241211
  Receipt Date: 20241211
  Transmission Date: 20250115
  Serious: No
  Sender: GLAXOSMITHKLINE
  Company Number: US-GSK-US2024AMR144943

PATIENT
  Sex: Female
  Weight: 88.39 kg

DRUGS (1)
  1. ZEJULA [Suspect]
     Active Substance: NIRAPARIB
     Indication: Malignant peritoneal neoplasm
     Dosage: 1 DF, QD, 300MG 30^S
     Route: 048
     Dates: start: 20241101

REACTIONS (1)
  - Nausea [Not Recovered/Not Resolved]
